FAERS Safety Report 22616798 (Version 1)
Quarter: 2023Q2

REPORT INFORMATION
  Report Type: Spontaneous
  Country: CA (occurrence: CA)
  Receive Date: 20230619
  Receipt Date: 20230619
  Transmission Date: 20230722
  Serious: Yes (Hospitalization)
  Sender: FDA-Public Use
  Company Number: CA-HLS-202301438

PATIENT
  Age: 50 Year
  Sex: Male
  Weight: 102 kg

DRUGS (8)
  1. ATROPINE [Concomitant]
     Active Substance: ATROPINE
     Dosage: NOT SPECIFIED DOSAGE FORM
     Route: 065
  2. BENZTROPINE [Concomitant]
     Active Substance: BENZTROPINE
     Dosage: TABLETS DOSAGE FORM
     Route: 065
  3. CHLORPROMAZINE [Concomitant]
     Active Substance: CHLORPROMAZINE
     Dosage: NOT SPECIFIED DOSAGE FORM
     Route: 065
  4. CLOZARIL [Suspect]
     Active Substance: CLOZAPINE
     Indication: Schizophrenia
     Dosage: 1 EVERY 1 DAYS?AMOUNT: 350 MILLIGRAM?TABLETS DOSAGE FORM?THERAPY DURATION: 25 YEARS
     Route: 048
  5. HALOPERIDOL [Concomitant]
     Active Substance: HALOPERIDOL
     Dosage: NOT SPECIFIED DOSAGE FORM
     Route: 065
  6. LACTULOSE [Concomitant]
     Active Substance: LACTULOSE
     Dosage: NOT SPECIFIED DOSAGE FORM
     Route: 065
  7. LAMOTRIGINE [Concomitant]
     Active Substance: LAMOTRIGINE
     Dosage: TABLETS DOSAGE FORM
     Route: 065
  8. LORAZEPAM [Concomitant]
     Active Substance: LORAZEPAM
     Dosage: NOT SPECIFIED DOSAGE FORM
     Route: 065

REACTIONS (5)
  - Abdominal compartment syndrome [None]
  - Intestinal dilatation [None]
  - Intestinal ischaemia [None]
  - Intestinal obstruction [None]
  - Oesophageal dilatation [None]
